FAERS Safety Report 4273243-8 (Version None)
Quarter: 2004Q1

REPORT INFORMATION
  Report Type: 
  Country: None (occurrence: None)
  Receive Date: 20040116
  Receipt Date: 20030318
  Transmission Date: 20041129
  Serious: Yes (Hospitalization)
  Sender: FDA-Public Use
  Company Number: JP-ROCHE-334346

PATIENT
  Age: 57 Year
  Sex: Male
  Weight: 59.8 kg

DRUGS (33)
  1. INVIRASE [Suspect]
     Indication: HIV INFECTION
     Route: 048
     Dates: start: 19990731, end: 19991103
  2. INVIRASE [Suspect]
     Route: 048
     Dates: start: 19991127, end: 20001020
  3. INVIRASE [Suspect]
     Route: 048
     Dates: start: 20001213, end: 20010605
  4. INVIRASE [Suspect]
     Route: 048
     Dates: start: 20010702
  5. EPIVIR [Suspect]
     Indication: HIV INFECTION
     Route: 048
     Dates: start: 19991112, end: 20001012
  6. EPIVIR [Suspect]
     Route: 048
     Dates: start: 19990727, end: 19991103
  7. ZERIT [Suspect]
     Indication: HIV INFECTION
     Route: 048
     Dates: start: 19991112, end: 20001005
  8. ZERIT [Suspect]
     Route: 048
     Dates: start: 19990727, end: 19991103
  9. NORVIR [Suspect]
     Indication: HIV INFECTION
     Route: 048
     Dates: start: 19990727, end: 19990727
  10. NORVIR [Suspect]
     Route: 048
     Dates: start: 19990728, end: 19990728
  11. NORVIR [Suspect]
     Route: 048
     Dates: start: 19990729, end: 19990729
  12. NORVIR [Suspect]
     Route: 048
     Dates: start: 19990730, end: 19991003
  13. NORVIR [Suspect]
     Route: 048
     Dates: start: 19991015, end: 19991103
  14. NORVIR [Suspect]
     Route: 048
     Dates: start: 19991127, end: 20001020
  15. NORVIR [Suspect]
     Route: 048
     Dates: start: 20001213, end: 20010605
  16. NORVIR [Suspect]
     Route: 048
     Dates: start: 20010702
  17. NORVIR [Suspect]
     Route: 065
     Dates: start: 19991004, end: 19991014
  18. GANCICLOVIR [Suspect]
     Route: 041
     Dates: start: 19990515, end: 19990517
  19. GANCICLOVIR [Suspect]
     Dosage: MAINTENANCE THERAPY
     Route: 041
     Dates: start: 19990621, end: 19990628
  20. GANCICLOVIR [Suspect]
     Dosage: MAINTENANCE THERAPY
     Route: 048
     Dates: start: 19990903, end: 19990910
  21. GANCICLOVIR [Suspect]
     Dosage: SLOW RELEASE, UNKNOWN DOSE
     Route: 048
     Dates: start: 19990708, end: 19990708
  22. GANCICLOVIR [Suspect]
     Route: 048
     Dates: start: 19991230, end: 20000104
  23. DIFLUCAN [Suspect]
     Route: 048
     Dates: start: 19990617, end: 19991105
  24. STOCRIN [Suspect]
     Indication: DRUG USE FOR UNKNOWN INDICATION
     Route: 048
     Dates: start: 20001013, end: 20001020
  25. STOCRIN [Suspect]
     Route: 048
     Dates: start: 20001213, end: 20010617
  26. STOCRIN [Suspect]
     Route: 048
     Dates: start: 20010702
  27. FOSCAVIR [Suspect]
     Indication: DRUG USE FOR UNKNOWN INDICATION
     Route: 065
  28. RETROVIR [Concomitant]
     Indication: DRUG USE FOR UNKNOWN INDICATION
     Route: 048
     Dates: start: 20001006, end: 20001012
  29. BENAMBAX [Concomitant]
     Indication: DRUG USE FOR UNKNOWN INDICATION
     Route: 050
     Dates: start: 19990525, end: 20020310
  30. DECADRON [Concomitant]
     Indication: DRUG USE FOR UNKNOWN INDICATION
     Route: 042
     Dates: start: 19991111, end: 19991228
  31. PREDONINE [Concomitant]
     Indication: DRUG USE FOR UNKNOWN INDICATION
     Route: 048
     Dates: start: 20000115, end: 20000914
  32. PREDNISOLONE [Concomitant]
     Indication: DRUG USE FOR UNKNOWN INDICATION
     Route: 048
     Dates: start: 20000218, end: 20000831
  33. KALETRA [Concomitant]
     Indication: DRUG USE FOR UNKNOWN INDICATION
     Route: 048
     Dates: start: 20010606, end: 20010617

REACTIONS (10)
  - BLOOD ALKALINE PHOSPHATASE INCREASED [None]
  - BLOOD AMYLASE INCREASED [None]
  - BLOOD URIC ACID INCREASED [None]
  - DYSPHAGIA [None]
  - HYPERLACTACIDAEMIA [None]
  - HYPERLIPIDAEMIA [None]
  - HYPOAESTHESIA [None]
  - MALAISE [None]
  - MUSCULAR WEAKNESS [None]
  - RENAL IMPAIRMENT [None]
